FAERS Safety Report 8069832-5 (Version None)
Quarter: 2012Q1

REPORT INFORMATION
  Report Type: 
  Country: None (occurrence: None)
  Receive Date: 20120125
  Receipt Date: 20120125
  Transmission Date: 20120608
  Serious: Yes (Hospitalization)
  Sender: FDA-Public Use
  Company Number: None

PATIENT
  Age: 58 Year
  Sex: Male
  Weight: 78.471 kg

DRUGS (1)
  1. EGRIFTA [Suspect]
     Indication: LIPODYSTROPHY ACQUIRED
     Dosage: 2 VIALS DILUTED IN STERILE WAT
     Route: 058
     Dates: start: 20110601, end: 20120121

REACTIONS (8)
  - MALAISE [None]
  - DECREASED APPETITE [None]
  - MUSCLE SPASMS [None]
  - DIARRHOEA [None]
  - ABDOMINAL PAIN UPPER [None]
  - NAUSEA [None]
  - PARAESTHESIA [None]
  - TOXICITY TO VARIOUS AGENTS [None]
